FAERS Safety Report 9253899 (Version 3)
Quarter: 2013Q4

REPORT INFORMATION
  Report Type: Spontaneous
  Country: US (occurrence: US)
  Receive Date: 20130425
  Receipt Date: 20131017
  Transmission Date: 20140711
  Serious: Yes (Other)
  Sender: FDA-Public Use
  Company Number: US-ASTRAZENECA-2013SE27290

PATIENT
  Age: 52 Year
  Sex: Female
  Weight: 106.6 kg

DRUGS (14)
  1. NEXIUM [Suspect]
     Indication: GASTRIC ULCER
     Route: 048
     Dates: start: 20040920
  2. NEXIUM [Suspect]
     Indication: OBESITY SURGERY
     Route: 048
     Dates: start: 20040920
  3. NEXIUM [Suspect]
     Indication: GASTRIC ULCER
     Route: 048
     Dates: start: 20051110
  4. NEXIUM [Suspect]
     Indication: OBESITY SURGERY
     Route: 048
     Dates: start: 20051110
  5. METOPROLOL [Concomitant]
     Indication: HYPERTENSION
  6. POTASSIUM [Concomitant]
  7. DARVOCET [Concomitant]
  8. ROBAXIN [Concomitant]
  9. LISINOPRIL [Concomitant]
  10. HYDROCHLOROTHIAZIDE [Concomitant]
  11. LASIX [Concomitant]
  12. MYLANTA [Concomitant]
  13. CLONIDINE HCL [Concomitant]
     Dates: start: 20060322
  14. CYCLOBENZAPRINE [Concomitant]
     Dates: start: 20060102

REACTIONS (15)
  - Arthropathy [Unknown]
  - Osteoporosis [Not Recovered/Not Resolved]
  - Bone density decreased [Unknown]
  - Bone disorder [Unknown]
  - Multiple fractures [Unknown]
  - Calcium deficiency [Unknown]
  - Exostosis [Unknown]
  - Tooth loss [Unknown]
  - Diabetes mellitus [Unknown]
  - Vitamin D deficiency [Unknown]
  - Intervertebral disc degeneration [Unknown]
  - Osteopenia [Unknown]
  - Ankle fracture [Unknown]
  - Weight decreased [Unknown]
  - Depression [Unknown]
